FAERS Safety Report 6975608-X (Version None)
Quarter: 2010Q3

REPORT INFORMATION
  Report Type: 
  Country: None (occurrence: None)
  Receive Date: 20100910
  Receipt Date: 20100830
  Transmission Date: 20110219
  Serious: Yes (Death)
  Sender: FDA-Public Use
  Company Number: US-JNJFOC-20100600659

PATIENT
  Age: 16 Year
  Sex: Female

DRUGS (3)
  1. TYLENOL PM [Suspect]
     Indication: SUICIDE ATTEMPT
  2. COCAINE [Suspect]
     Indication: SUICIDE ATTEMPT
  3. CAFFEINE [Suspect]
     Indication: SUICIDE ATTEMPT

REACTIONS (2)
  - COMPLETED SUICIDE [None]
  - MULTIPLE DRUG OVERDOSE ACCIDENTAL [None]
